FAERS Safety Report 23207709 (Version 1)
Quarter: 2023Q4

REPORT INFORMATION
  Report Type: Spontaneous
  Country: US (occurrence: US)
  Receive Date: 20231120
  Receipt Date: 20231120
  Transmission Date: 20240110
  Serious: No
  Sender: FDA-Public Use
  Company Number: US-drreddys-LIT/USA/23/0186978

PATIENT
  Age: 12 Year
  Sex: Female

DRUGS (8)
  1. FLUCONAZOLE [Suspect]
     Active Substance: FLUCONAZOLE
     Indication: Vulvovaginal pain
     Route: 048
  2. GABAPENTIN [Suspect]
     Active Substance: GABAPENTIN
     Indication: Vulvovaginal pain
     Route: 048
  3. GABAPENTIN [Suspect]
     Active Substance: GABAPENTIN
     Route: 061
  4. LIDOCAINE [Suspect]
     Active Substance: LIDOCAINE
     Indication: Vulvovaginal pain
     Route: 061
  5. HYDROCORTISONE [Suspect]
     Active Substance: HYDROCORTISONE
     Indication: Vulvovaginal pain
     Route: 061
  6. AMITRIPTYLINE [Suspect]
     Active Substance: AMITRIPTYLINE
     Indication: Vulvovaginal pain
     Route: 061
  7. KETAMINE [Suspect]
     Active Substance: KETAMINE
     Indication: Vulvovaginal pain
     Route: 061
  8. DOXEPIN [Suspect]
     Active Substance: DOXEPIN
     Indication: Vulvovaginal pain
     Route: 048

REACTIONS (1)
  - Drug ineffective for unapproved indication [Unknown]
